FAERS Safety Report 9517816 (Version 1)
Quarter: 2013Q1

REPORT INFORMATION
  Report Type: Spontaneous
  Country: US (occurrence: None)
  Receive Date: 20130305
  Receipt Date: 20130305
  Transmission Date: 20140127
  Serious: Yes (Other)
  Sender: FDA-Public Use
  Company Number: 163-21880-12011992

PATIENT
  Age: 75 Year
  Sex: Male

DRUGS (4)
  1. REVLIMID [Suspect]
     Route: 048
     Dates: start: 20111129
  2. ASA (ACETYLSALICYCLIC ACID ) (UNKOWN) [Concomitant]
  3. CARVEDILOL (CARVEDILOL) (UNKNOWN) [Concomitant]
  4. HYDROCHLOROTHIAZIDE (HYDROCHLOROTHIAZIDE) (UNKNOWN) [Concomitant]

REACTIONS (7)
  - Red blood cell count decreased [None]
  - Nasopharyngitis [None]
  - Fatigue [None]
  - Nausea [None]
  - Cough [None]
  - Pyrexia [None]
  - Hyperhidrosis [None]
